FAERS Safety Report 8325059-0 (Version None)
Quarter: 2012Q2

REPORT INFORMATION
  Report Type: 
  Country: None (occurrence: None)
  Receive Date: 20120427
  Receipt Date: 20120419
  Transmission Date: 20120825
  Serious: Yes (Death)
  Sender: FDA-Public Use
  Company Number: 2012MA005286

PATIENT
  Age: 72 Year
  Sex: Male

DRUGS (1)
  1. METFORMIN HYDROCHLORIDE [Suspect]
     Indication: DIABETES MELLITUS
     Dosage: 1000 MG;QD;PO
     Route: 047

REACTIONS (3)
  - RENAL FAILURE ACUTE [None]
  - UROSEPSIS [None]
  - LACTIC ACIDOSIS [None]
